FAERS Safety Report 8166733-9 (Version None)
Quarter: 2012Q1

REPORT INFORMATION
  Report Type: 
  Country: None (occurrence: None)
  Receive Date: 20120227
  Receipt Date: 20120216
  Transmission Date: 20120608
  Serious: Yes (Hospitalization, Other)
  Sender: FDA-Public Use
  Company Number: US-SANOFI-AVENTIS-2012SA010676

PATIENT
  Sex: Female

DRUGS (4)
  1. MULTAQ [Suspect]
     Route: 048
     Dates: start: 20111218
  2. MULTAQ [Suspect]
     Route: 048
     Dates: start: 20111218
  3. MULTAQ [Suspect]
     Indication: ATRIAL FIBRILLATION
     Route: 048
     Dates: start: 20101231, end: 20111215
  4. MULTAQ [Suspect]
     Route: 048
     Dates: start: 20101231, end: 20111215

REACTIONS (4)
  - GALLBLADDER DISORDER [None]
  - HEART RATE IRREGULAR [None]
  - DYSPNOEA [None]
  - FLUID RETENTION [None]
